FAERS Safety Report 9432496 (Version 2)
Quarter: 2013Q3

REPORT INFORMATION
  Report Type: Spontaneous
  Country: US (occurrence: US)
  Receive Date: 20130731
  Receipt Date: 20130903
  Transmission Date: 20140515
  Serious: Yes (Other)
  Sender: FDA-Public Use
  Company Number: US-NOVOPROD-383952

PATIENT
  Age: 2 Year
  Sex: Male
  Weight: 13 kg

DRUGS (5)
  1. NOVOSEVEN RT [Suspect]
     Indication: TONGUE HAEMORRHAGE
     Dosage: 2 MG
     Route: 042
     Dates: start: 20130720, end: 20130720
  2. NOVOSEVEN RT [Suspect]
     Indication: FACTOR VIII DEFICIENCY
     Dosage: 2 MG
     Route: 042
     Dates: start: 20130720, end: 20130720
  3. NOVOSEVEN RT [Suspect]
     Dosage: UNK
     Route: 042
     Dates: start: 201303
  4. AMICAR [Concomitant]
     Indication: PRODUCT USED FOR UNKNOWN INDICATION
     Dosage: UNK
  5. ADVATE [Concomitant]
     Indication: PRODUCT USED FOR UNKNOWN INDICATION
     Dosage: 1000 MG, TIW, THREE TIMES A WEEK
     Dates: end: 20130720

REACTIONS (3)
  - Grand mal convulsion [Recovered/Resolved]
  - Grand mal convulsion [Recovered/Resolved]
  - Pyrexia [Recovered/Resolved]
